FAERS Safety Report 9201357 (Version 1)
Quarter: 2013Q2

REPORT INFORMATION
  Report Type: Report from Study
  Country: US (occurrence: US)
  Receive Date: 20130401
  Receipt Date: 20130401
  Transmission Date: 20140414
  Serious: Yes (Hospitalization)
  Sender: FDA-Public Use
  Company Number: AU-ASTELLAS-2013US003418

PATIENT
  Sex: Female
  Weight: 54 kg

DRUGS (1)
  1. ERLOTINIB TABLET [Suspect]
     Indication: NON-SMALL CELL LUNG CANCER
     Dosage: UNK
     Route: 048
     Dates: start: 20130316

REACTIONS (2)
  - Abdominal distension [Not Recovered/Not Resolved]
  - Gastric dilatation [Not Recovered/Not Resolved]
